FAERS Safety Report 24064178 (Version 1)
Quarter: 2024Q3

REPORT INFORMATION
  Report Type: Spontaneous
  Country: US (occurrence: US)
  Receive Date: 20240709
  Receipt Date: 20240709
  Transmission Date: 20241017
  Serious: Yes (Hospitalization)
  Sender: JOHNSON AND JOHNSON
  Company Number: US-JNJFOC-20240713625

PATIENT
  Age: 60 Year
  Sex: Female

DRUGS (2)
  1. EDURANT [Suspect]
     Active Substance: RILPIVIRINE HYDROCHLORIDE
     Indication: Prophylaxis against HIV infection
     Route: 048
  2. VOCABRIA [Suspect]
     Active Substance: CABOTEGRAVIR SODIUM
     Indication: Prophylaxis against HIV infection
     Route: 065

REACTIONS (2)
  - Hospitalisation [Unknown]
  - Off label use [Unknown]
